FAERS Safety Report 9288128 (Version 2)
Quarter: 2013Q2

REPORT INFORMATION
  Report Type: Spontaneous
  Country: US (occurrence: US)
  Receive Date: 20130514
  Receipt Date: 20130521
  Transmission Date: 20140414
  Serious: Yes (Other)
  Sender: FDA-Public Use
  Company Number: US-BAYER-2013-057336

PATIENT
  Age: 42 Year
  Sex: Female

DRUGS (4)
  1. YASMIN [Suspect]
  2. OCELLA [Suspect]
  3. ZARAH [Suspect]
  4. CEPHALEXIN [Concomitant]
     Dosage: 500 MG, TID, 1 CAPSULE THREE TIMES DAILY FOR 7 DAYS
     Route: 048
     Dates: start: 20111118

REACTIONS (2)
  - Pulmonary embolism [None]
  - Deep vein thrombosis [None]
